FAERS Safety Report 20741477 (Version 1)
Quarter: 2022Q2

REPORT INFORMATION
  Report Type: Spontaneous
  Country: US (occurrence: US)
  Receive Date: 20220422
  Receipt Date: 20220422
  Transmission Date: 20220720
  Serious: No
  Sender: FDA-Public Use
  Company Number: US-PFIZER INC-2021750926

PATIENT
  Age: 17 Year
  Sex: Female
  Weight: 70.31 kg

DRUGS (2)
  1. GABAPENTIN [Suspect]
     Active Substance: GABAPENTIN
     Indication: Neuralgia
     Dosage: 300 MG, 3X/DAY
     Route: 048
     Dates: start: 2021, end: 202104
  2. DROSPIRENONE\ETHINYL ESTRADIOL [Concomitant]
     Active Substance: DROSPIRENONE\ETHINYL ESTRADIOL
     Indication: Contraception
     Dosage: 3MG/0.03MG, 1X/DAY
     Route: 048
     Dates: start: 2017

REACTIONS (2)
  - Hypersensitivity [Unknown]
  - Off label use [Unknown]
